FAERS Safety Report 12240609 (Version 2)
Quarter: 2016Q2

REPORT INFORMATION
  Report Type: Report from Study
  Country: CA (occurrence: CA)
  Receive Date: 20160406
  Receipt Date: 20160420
  Transmission Date: 20160815
  Serious: Yes (Other)
  Sender: FDA-Public Use
  Company Number: CA-ROCHE-1576761

PATIENT
  Age: 58 Year
  Sex: Female

DRUGS (20)
  1. ORENCIA [Concomitant]
     Active Substance: ABATACEPT
     Dosage: WEEKLY INJECT, NO WASHOUT AS PER PHYSICIAN INSTRUCTIONS
     Route: 065
  2. FLEXERIL (CANADA) [Concomitant]
     Indication: ECZEMA
  3. ACTEMRA [Suspect]
     Active Substance: TOCILIZUMAB
     Indication: RHEUMATOID ARTHRITIS
     Route: 058
     Dates: start: 20150410
  4. TECTA [Concomitant]
     Active Substance: PANTOPRAZOLE MAGNESIUM
  5. REACTINE (CANADA) [Concomitant]
     Active Substance: CETIRIZINE HYDROCHLORIDE
     Route: 065
  6. ORUDIS - SLOW RELEASE [Concomitant]
  7. ACTEMRA [Suspect]
     Active Substance: TOCILIZUMAB
     Route: 058
     Dates: start: 20160329
  8. VITAMIN C [Concomitant]
     Active Substance: ASCORBIC ACID
  9. BENADRYL [Concomitant]
     Active Substance: DIPHENHYDRAMINE HYDROCHLORIDE
     Dosage: AT NIGHT
     Route: 065
  10. RANITIDINE. [Concomitant]
     Active Substance: RANITIDINE
  11. VENTOLIN [Concomitant]
     Active Substance: ALBUTEROL SULFATE
     Dosage: AS REQUIRED
     Route: 065
  12. CLONIDINE. [Concomitant]
     Active Substance: CLONIDINE
  13. CELEXA [Concomitant]
     Active Substance: CITALOPRAM HYDROBROMIDE
  14. DEPO-MEDROL [Concomitant]
     Active Substance: METHYLPREDNISOLONE ACETATE
     Route: 065
  15. PROMETRIUM [Concomitant]
     Active Substance: PROGESTERONE
  16. ADVAIR HFA [Concomitant]
     Active Substance: FLUTICASONE PROPIONATE\SALMETEROL XINAFOATE
     Dosage: PUFFER
     Route: 065
  17. HYDROMORPHONE [Concomitant]
     Active Substance: HYDROMORPHONE
  18. RESTORIL [Concomitant]
     Active Substance: TEMAZEPAM
  19. WELLBUTRIN [Concomitant]
     Active Substance: BUPROPION HYDROCHLORIDE
  20. NORTRIPTYLINE [Concomitant]
     Active Substance: NORTRIPTYLINE

REACTIONS (16)
  - Headache [Unknown]
  - Drug hypersensitivity [Unknown]
  - Hyperhidrosis [Unknown]
  - Rheumatoid arthritis [Unknown]
  - Asthma [Not Recovered/Not Resolved]
  - Fluid retention [Unknown]
  - Bursitis [Unknown]
  - Fatigue [Unknown]
  - Temperature regulation disorder [Unknown]
  - Erythema [Unknown]
  - Upper respiratory tract infection [Unknown]
  - Back pain [Unknown]
  - Pain [Unknown]
  - Hypersensitivity [Unknown]
  - Immunodeficiency [Unknown]
  - Rash erythematous [Unknown]

NARRATIVE: CASE EVENT DATE: 201603
